FAERS Safety Report 11238362 (Version 1)
Quarter: 2015Q3

REPORT INFORMATION
  Report Type: Spontaneous
  Country: ES (occurrence: ES)
  Receive Date: 20150704
  Receipt Date: 20150704
  Transmission Date: 20151125
  Serious: Yes (Other)
  Sender: FDA-Public Use
  Company Number: ES-CIPLA LTD.-2015ES05187

PATIENT

DRUGS (2)
  1. CETUXIMAB [Suspect]
     Active Substance: CETUXIMAB
     Indication: COLORECTAL CANCER METASTATIC
     Dosage: 400 MG/M2 ON DAY 1 OF CYCLE 1, 250 MG/M2 WEEKLY THEREAFTER
     Route: 065
  2. IRINOTECAN [Suspect]
     Active Substance: IRINOTECAN
     Indication: COLORECTAL CANCER METASTATIC
     Dosage: 180 MG/M2 (MAXIMUM BODY SURFACE AREA OF 2.0 M2) WAS ADMINISTERED MORE THAN OR EQUAL TO 60 MINUTES.
     Route: 065

REACTIONS (1)
  - Toxicity to various agents [Unknown]
